FAERS Safety Report 9765969 (Version 1)
Quarter: 2013Q4

REPORT INFORMATION
  Report Type: Spontaneous
  Country: US (occurrence: US)
  Receive Date: 20131217
  Receipt Date: 20131217
  Transmission Date: 20140711
  Serious: No
  Sender: FDA-Public Use
  Company Number: US-GLAXOSMITHKLINE-A1014663A

PATIENT
  Sex: Female

DRUGS (1)
  1. VOTRIENT [Suspect]
     Indication: SOLID PSEUDOPAPILLARY TUMOUR OF THE PANCREAS
     Route: 048

REACTIONS (4)
  - Pain in extremity [Unknown]
  - Neck pain [Unknown]
  - Aphonia [Not Recovered/Not Resolved]
  - Vocal cord disorder [Not Recovered/Not Resolved]
